FAERS Safety Report 7001794-1 (Version None)
Quarter: 2010Q3

REPORT INFORMATION
  Report Type: 
  Country: None (occurrence: None)
  Receive Date: 20100920
  Receipt Date: 20071102
  Transmission Date: 20110219
  Serious: Yes (Other)
  Sender: FDA-Public Use
  Company Number: US-ASTRAZENECA-2006UW25753

PATIENT
  Age: 22743 Day
  Sex: Male
  Weight: 99.8 kg

DRUGS (17)
  1. SEROQUEL [Suspect]
     Indication: DEPRESSION
     Route: 048
     Dates: start: 20010611, end: 20050302
  2. SEROQUEL [Suspect]
     Route: 048
     Dates: start: 20010625
  3. ANAPROX DS [Concomitant]
     Dosage: STRENGTH 550 MG, 1000MG, 1100MG DOSE 1100-2200 MG
     Route: 048
     Dates: start: 20050321
  4. PREVACID [Concomitant]
     Dates: start: 20010505
  5. EFFEXOR XR [Concomitant]
     Dosage: STRENGTH 75MG, 150MG, 225MG DOSE 75MG-225MG
     Dates: start: 20010529
  6. LIPITOR [Concomitant]
     Dosage: STRENGTH 20 MG, 40 MG
     Dates: start: 20011022
  7. PLAVIX [Concomitant]
     Route: 048
     Dates: start: 20011228
  8. HYDROCODONE BITARTRATE AND ACETAMINOPHEN [Concomitant]
     Dosage: 5/500, 7.5/750
     Dates: start: 20010616
  9. PROCHLORPERAZINE [Concomitant]
     Dates: start: 20020918
  10. LOPID [Concomitant]
     Dates: start: 20050321
  11. VASOTEC [Concomitant]
     Indication: HYPERTENSION
     Dosage: STRENGTH 5 MG, 10MG, 20MG DOSE 10MG-40MG
     Dates: start: 20010505
  12. AGGRENOX [Concomitant]
     Indication: PAIN
     Dosage: 25MG-200MG TWO TIMES A DAY
     Route: 048
     Dates: start: 20050416
  13. ACIPHEX EXTENDED RELEASE [Concomitant]
     Route: 048
     Dates: start: 20020103
  14. LOPRESSOR [Concomitant]
     Indication: TACHYCARDIA
     Dosage: STRENGTH 50MG, 100MG DOSE 100MG-200MG
     Route: 048
     Dates: start: 20010110
  15. ZOCOR [Concomitant]
     Route: 048
     Dates: start: 20050321
  16. HYDROCHLOROTHIAZIDE [Concomitant]
     Dates: start: 20070220
  17. PROTONIX [Concomitant]
     Dates: start: 20070220

REACTIONS (2)
  - DIABETES MELLITUS [None]
  - DIABETES MELLITUS INADEQUATE CONTROL [None]
